FAERS Safety Report 5395330-3 (Version None)
Quarter: 2007Q3

REPORT INFORMATION
  Report Type: 
  Country: None (occurrence: None)
  Receive Date: 20070724
  Receipt Date: 20070713
  Transmission Date: 20080115
  Serious: Yes (Death)
  Sender: FDA-Public Use
  Company Number: JP-BRISTOL-MYERS SQUIBB COMPANY-13852108

PATIENT
  Age: 50 Year
  Sex: Male

DRUGS (7)
  1. ARIPIPRAZOLE [Suspect]
     Indication: SCHIZOPHRENIA
     Dosage: THE DRUG WAS ALSO TAKEN 15MG/DAY FROM UNKNOWN SART DATE TO 26-JUN-2007 WHICH WAS DECREASED TO 12MG.
     Route: 048
     Dates: start: 20070627, end: 20070630
  2. FEXOFENADINE HCL [Suspect]
     Route: 048
     Dates: end: 20070630
  3. SOLIFENACIN SUCCINATE [Suspect]
     Route: 048
     Dates: end: 20070621
  4. ZOTEPINE [Suspect]
     Route: 048
     Dates: start: 20070608, end: 20070630
  5. TOLTERODINE TARTRATE [Suspect]
     Route: 048
     Dates: start: 20070622, end: 20070629
  6. FLAVOXATE HCL [Concomitant]
     Dosage: UNK-19JUN07 400MG 20JUN07-21JUN07 200MG 22JUN07-24JUN07 200MG 25JUN07 400MG 26JUN07-30JUN07 200MG
     Route: 048
     Dates: start: 20070626, end: 20070630
  7. DIAZEPAM [Concomitant]
     Route: 048
     Dates: end: 20070630

REACTIONS (1)
  - SUDDEN DEATH [None]
